FAERS Safety Report 4324987-0 (Version None)
Quarter: 2004Q1

REPORT INFORMATION
  Report Type: 
  Country: None (occurrence: None)
  Receive Date: 20040323
  Receipt Date: 20040213
  Transmission Date: 20041129
  Serious: No
  Sender: FDA-Public Use
  Company Number: US_0402100821

PATIENT
  Age: 57 Year
  Sex: Male
  Weight: 73 kg

DRUGS (4)
  1. CIALIS [Suspect]
     Indication: ERECTILE DYSFUNCTION
     Dosage: 20 MG
     Dates: start: 20040113
  2. HYDROCHLOROTHIAZIDE [Concomitant]
  3. PROPOXYPHENE [Concomitant]
  4. CELECOXIB [Concomitant]

REACTIONS (1)
  - THERAPEUTIC RESPONSE DECREASED [None]
